FAERS Safety Report 7633709-7 (Version None)
Quarter: 2011Q3

REPORT INFORMATION
  Report Type: 
  Country: None (occurrence: None)
  Receive Date: 20110718
  Receipt Date: 20110622
  Transmission Date: 20111222
  Serious: Yes (Other)
  Sender: FDA-Public Use
  Company Number: US-20110001

PATIENT
  Age: 30 Year
  Sex: Male

DRUGS (5)
  1. ISOSORBIDE (ISOSORBIDE) [Concomitant]
  2. HEXABRIX [Suspect]
     Indication: CATHETERISATION CARDIAC
     Dosage: 290 ML, 1 IN 1 TOT
  3. LOVASTATIN [Concomitant]
  4. ATENOLOL [Concomitant]
  5. ASPIRIN [Concomitant]

REACTIONS (5)
  - THYROIDITIS [None]
  - HEADACHE [None]
  - TOXICITY TO VARIOUS AGENTS [None]
  - HYPERTHYROIDISM [None]
  - CHEST PAIN [None]
